FAERS Safety Report 26211585 (Version 1)
Quarter: 2025Q4

REPORT INFORMATION
  Report Type: Report from Study
  Country: US (occurrence: US)
  Receive Date: 20251230
  Receipt Date: 20251230
  Transmission Date: 20260118
  Serious: Yes (Hospitalization)
  Sender: GILEAD
  Company Number: US-GILEAD-2025-0742355

PATIENT
  Sex: Male

DRUGS (6)
  1. AZTREONAM LYSINE [Suspect]
     Active Substance: AZTREONAM LYSINE
     Indication: Burkholderia pseudomallei infection
     Dosage: INHALE 1 ML VIA NEBULIZER THREE TIMES DAILY X 28 DAYS ON, 28 DAYS OFF ALTERNATING WITH TOBRAMYCIN.
     Route: 055
  2. KITABIS PAK [Concomitant]
     Active Substance: TOBRAMYCIN
     Dosage: 300MG/5ML VIAL (56/PK)
  3. FLONASE [Concomitant]
     Active Substance: FLUTICASONE PROPIONATE
     Dosage: FLONASE SPR 0.05%
  4. KEPPRA [Concomitant]
     Active Substance: LEVETIRACETAM
     Dosage: 100 MG/ML
     Route: 048
  5. HYDROCORTISONE [Concomitant]
     Active Substance: HYDROCORTISONE
  6. VALPROIC ACID [Concomitant]
     Active Substance: VALPROIC ACID

REACTIONS (2)
  - Rhinorrhoea [Unknown]
  - Product use in unapproved indication [Unknown]
